FAERS Safety Report 13344501 (Version 1)
Quarter: 2017Q1

REPORT INFORMATION
  Report Type: Spontaneous
  Country: US (occurrence: US)
  Receive Date: 20170317
  Receipt Date: 20170317
  Transmission Date: 20170428
  Serious: No
  Sender: FDA-Public Use
  Company Number: US-ASTRAZENECA-2017SE24417

PATIENT
  Age: 18424 Day
  Sex: Male
  Weight: 131.5 kg

DRUGS (2)
  1. KOMBIGLYZE XR [Suspect]
     Active Substance: METFORMIN HYDROCHLORIDE\SAXAGLIPTIN HYDROCHLORIDE
     Indication: TYPE 2 DIABETES MELLITUS
     Dosage: 2.5 + 1000 MILLIGRAMS, 2 TABLETS AT NIGHT
     Route: 048
     Dates: start: 2016, end: 20170302
  2. KOMBIGLYZE XR [Suspect]
     Active Substance: METFORMIN HYDROCHLORIDE\SAXAGLIPTIN HYDROCHLORIDE
     Indication: TYPE 2 DIABETES MELLITUS
     Dosage: 2.5 + 1000 MILLIGRAMS, 2 TABLETS IN THE MORNING
     Route: 048
     Dates: start: 20170304

REACTIONS (4)
  - Off label use [Unknown]
  - Intentional product misuse [Unknown]
  - Rash pruritic [Not Recovered/Not Resolved]
  - Rash [Not Recovered/Not Resolved]

NARRATIVE: CASE EVENT DATE: 20170304
